FAERS Safety Report 7812072-2 (Version None)
Quarter: 2011Q4

REPORT INFORMATION
  Report Type: 
  Country: None (occurrence: None)
  Receive Date: 20111013
  Receipt Date: 20111004
  Transmission Date: 20120403
  Serious: Yes (Hospitalization)
  Sender: FDA-Public Use
  Company Number: US-ASTRAZENECA-2010SE31392

PATIENT
  Age: 50 Year
  Sex: Female
  Weight: 68 kg

DRUGS (10)
  1. CHOLAMATINE [Concomitant]
     Indication: ANXIETY
     Dates: start: 20000101
  2. VIT D [Concomitant]
     Indication: HYPOVITAMINOSIS
     Dates: start: 20100101
  3. TERAZONE [Concomitant]
     Indication: ANTIDEPRESSANT THERAPY
     Route: 048
     Dates: start: 20040101
  4. LEROTHYROIX NA [Concomitant]
     Indication: THYROID HORMONE REPLACEMENT THERAPY
     Route: 048
     Dates: start: 20090101
  5. TEGRETOL [Concomitant]
     Indication: MOOD ALTERED
     Route: 048
     Dates: start: 20040101
  6. ZOCOR [Concomitant]
     Indication: BLOOD CHOLESTEROL
     Route: 048
     Dates: start: 20010101
  7. SEROQUEL [Suspect]
     Indication: BIPOLAR DISORDER
     Route: 048
     Dates: start: 20030101
  8. SEROQUEL [Suspect]
     Route: 048
  9. SEROQUEL [Suspect]
     Route: 048
  10. TOPRANEX [Concomitant]
     Indication: MOOD ALTERED
     Route: 048
     Dates: start: 20040101

REACTIONS (6)
  - INCONTINENCE [None]
  - SCREAMING [None]
  - MENTAL DISORDER [None]
  - CONFUSIONAL STATE [None]
  - LOSS OF CONSCIOUSNESS [None]
  - DRUG DOSE OMISSION [None]
